FAERS Safety Report 12701799 (Version 1)
Quarter: 2016Q3

REPORT INFORMATION
  Report Type: Spontaneous
  Country: US (occurrence: US)
  Receive Date: 20160831
  Receipt Date: 20160831
  Transmission Date: 20161109
  Serious: No
  Sender: FDA-Public Use
  Company Number: US-JAZZ-2016-US-007513

PATIENT
  Sex: Male

DRUGS (21)
  1. XYREM [Suspect]
     Active Substance: SODIUM OXYBATE
     Indication: INSOMNIA
     Dosage: DOSE ADJUSTMENTS
     Route: 048
  2. CIALIS [Concomitant]
     Active Substance: TADALAFIL
  3. CEPHALEXIN. [Concomitant]
     Active Substance: CEPHALEXIN
  4. XYREM [Suspect]
     Active Substance: SODIUM OXYBATE
     Indication: SLEEP DISORDER
     Dosage: 1.5 G, BID
     Route: 048
     Dates: start: 201108, end: 201109
  5. LIPITOR [Concomitant]
     Active Substance: ATORVASTATIN CALCIUM
  6. HYDROCODONE/ACETAMINOPHEN [Concomitant]
     Active Substance: ACETAMINOPHEN\HYDROCODONE
  7. NAPROXEN. [Concomitant]
     Active Substance: NAPROXEN
  8. TRAMADOL HCL [Concomitant]
     Active Substance: TRAMADOL HYDROCHLORIDE
  9. XALATAN [Concomitant]
     Active Substance: LATANOPROST
  10. QUETIAPINE FUMARATE. [Concomitant]
     Active Substance: QUETIAPINE FUMARATE
  11. FROVA [Concomitant]
     Active Substance: FROVATRIPTAN SUCCINATE
  12. OMEPRAZOLE. [Concomitant]
     Active Substance: OMEPRAZOLE
  13. SEROQUEL [Concomitant]
     Active Substance: QUETIAPINE FUMARATE
  14. LORAZEPAM. [Concomitant]
     Active Substance: LORAZEPAM
  15. PREVIDENT [Concomitant]
     Active Substance: SODIUM FLUORIDE
  16. FLUTICASONE PROPIONATE. [Concomitant]
     Active Substance: FLUTICASONE PROPIONATE
  17. LORATADINE. [Concomitant]
     Active Substance: LORATADINE
  18. SUMATRIPTAN SUCCINATE. [Concomitant]
     Active Substance: SUMATRIPTAN SUCCINATE
  19. ALPHAGAN P [Concomitant]
     Active Substance: BRIMONIDINE TARTRATE
  20. GABAPENTIN. [Concomitant]
     Active Substance: GABAPENTIN
  21. XYREM [Suspect]
     Active Substance: SODIUM OXYBATE
     Dosage: 4.5 G, BID
     Route: 048
     Dates: start: 201406

REACTIONS (1)
  - Pre-existing condition improved [Unknown]
